FAERS Safety Report 14320099 (Version 2)
Quarter: 2017Q4

REPORT INFORMATION
  Report Type: Spontaneous
  Country: US (occurrence: US)
  Receive Date: 20171222
  Receipt Date: 20171226
  Transmission Date: 20180321
  Serious: Yes (Death)
  Sender: FDA-Public Use
  Company Number: US-DEPOMED, INC.-US-2017DEP002421

PATIENT

DRUGS (1)
  1. LAZANDA [Suspect]
     Active Substance: FENTANYL CITRATE
     Indication: ENTHESOPATHY
     Dosage: 1 SPRAY IN EACH NOSTRIL FOUR TIMES DAILY
     Route: 045
     Dates: start: 20171027

REACTIONS (1)
  - Cervical vertebral fracture [Fatal]

NARRATIVE: CASE EVENT DATE: 20171207
